FAERS Safety Report 15569346 (Version 2)
Quarter: 2018Q4

REPORT INFORMATION
  Report Type: Spontaneous
  Country: US (occurrence: US)
  Receive Date: 20181031
  Receipt Date: 20181114
  Transmission Date: 20190205
  Serious: No
  Sender: FDA-Public Use
  Company Number: US-009507513-1810USA013554

PATIENT
  Age: 45 Year
  Sex: Female

DRUGS (1)
  1. NEXPLANON [Suspect]
     Active Substance: ETONOGESTREL
     Dosage: THE NEXPLANON ROD
     Route: 059
     Dates: start: 20150805, end: 20181029

REACTIONS (4)
  - Device breakage [Recovered/Resolved]
  - No adverse event [Unknown]
  - Product quality issue [Unknown]
  - Incorrect product administration duration [Unknown]

NARRATIVE: CASE EVENT DATE: 201808
